FAERS Safety Report 19068473 (Version 1)
Quarter: 2021Q1

REPORT INFORMATION
  Report Type: Spontaneous
  Country: US (occurrence: US)
  Receive Date: 20210326
  Receipt Date: 20210326
  Transmission Date: 20210420
  Serious: Yes (Hospitalization)
  Sender: FDA-Public Use
  Company Number: None

PATIENT
  Age: 61 Year
  Sex: Female
  Weight: 70.31 kg

DRUGS (13)
  1. ASPIRIN. [Concomitant]
     Active Substance: ASPIRIN
  2. BIOTIN [Concomitant]
     Active Substance: BIOTIN
  3. LEVOTHYROXINE. [Concomitant]
     Active Substance: LEVOTHYROXINE
  4. VITAMIN D3 [Concomitant]
     Active Substance: CHOLECALCIFEROL
  5. LISNOPRIL [Concomitant]
  6. REFRESH [Concomitant]
     Active Substance: UNSPECIFIED INGREDIENT
  7. IBUPROFEN. [Concomitant]
     Active Substance: IBUPROFEN
  8. MIRALAX [Concomitant]
     Active Substance: POLYETHYLENE GLYCOL 3350
  9. TYLENOL [Concomitant]
     Active Substance: ACETAMINOPHEN
  10. FASLODEX [Concomitant]
     Active Substance: FULVESTRANT
  11. IBRANCE [Suspect]
     Active Substance: PALBOCICLIB
     Dosage: ?          OTHER FREQUENCY:21D ON 7D OFF;?
     Route: 048
     Dates: start: 20210202
  12. VITAMIN B [Concomitant]
     Active Substance: VITAMIN B
  13. LORATADINE. [Concomitant]
     Active Substance: LORATADINE

REACTIONS (2)
  - Ileus [None]
  - Abdominal pain [None]
